FAERS Safety Report 8508327-9 (Version None)
Quarter: 2012Q3

REPORT INFORMATION
  Report Type: 
  Country: None (occurrence: None)
  Receive Date: 20120713
  Receipt Date: 20120704
  Transmission Date: 20120928
  Serious: Yes (Other)
  Sender: FDA-Public Use
  Company Number: ZA-JNJFOC-20120703092

PATIENT
  Sex: Female
  Weight: 48 kg

DRUGS (6)
  1. METHOTREXATE [Concomitant]
     Indication: ARTHRITIS
     Route: 048
  2. REVELLEX [Suspect]
     Route: 042
     Dates: start: 20120613
  3. REVELLEX [Suspect]
     Indication: RHEUMATOID ARTHRITIS
     Route: 042
     Dates: start: 20120530
  4. PREMARIN [Concomitant]
     Indication: HORMONE REPLACEMENT THERAPY
     Route: 048
  5. FOLIC ACID [Concomitant]
     Indication: ARTHRITIS
     Route: 048
  6. ANTI-HYPERTENSIVE MEDICATION [Concomitant]
     Indication: HYPERTENSION
     Route: 048

REACTIONS (2)
  - KIDNEY INFECTION [None]
  - DIPLOPIA [None]
